FAERS Safety Report 7486013-4 (Version None)
Quarter: 2011Q2

REPORT INFORMATION
  Report Type: 
  Country: None (occurrence: None)
  Receive Date: 20110517
  Receipt Date: 20110329
  Transmission Date: 20111010
  Serious: No
  Sender: FDA-Public Use
  Company Number: US-NOVEN-11US002132

PATIENT
  Sex: Male
  Weight: 46.712 kg

DRUGS (1)
  1. DAYTRANA [Suspect]
     Indication: ATTENTION DEFICIT/HYPERACTIVITY DISORDER
     Dosage: 15 MG, UNKNOWN
     Route: 062

REACTIONS (4)
  - DYSKINESIA [None]
  - INSOMNIA [None]
  - EXCESSIVE EYE BLINKING [None]
  - DEPRESSION [None]
